FAERS Safety Report 4633047-0 (Version None)
Quarter: 2005Q2

REPORT INFORMATION
  Report Type: 
  Country: None (occurrence: None)
  Receive Date: 20050325
  Receipt Date: 20050111
  Transmission Date: 20051028
  Serious: No
  Sender: FDA-Public Use
  Company Number: USA030741409

PATIENT
  Age: 67 Year
  Sex: Female
  Weight: 64 kg

DRUGS (2)
  1. FORTEO [Suspect]
     Indication: OSTEOPOROSIS
     Dosage: 20 UG/1 DAY
     Dates: start: 20030214
  2. DILAUDID [Concomitant]

REACTIONS (13)
  - ARTHROPATHY [None]
  - ASTHENIA [None]
  - BONE DENSITY DECREASED [None]
  - BONE PAIN [None]
  - DYSPNOEA [None]
  - DYSSTASIA [None]
  - HYPOAESTHESIA [None]
  - INJECTION SITE HAEMORRHAGE [None]
  - INJECTION SITE IRRITATION [None]
  - JOINT SPRAIN [None]
  - MOBILITY DECREASED [None]
  - PAIN [None]
  - SENSORY DISTURBANCE [None]
